FAERS Safety Report 9290842 (Version 1)
Quarter: 2013Q2

REPORT INFORMATION
  Report Type: Spontaneous
  Country: US (occurrence: US)
  Receive Date: 20130515
  Receipt Date: 20130515
  Transmission Date: 20140414
  Serious: No
  Sender: FDA-Public Use
  Company Number: US-BAYER-2013-059296

PATIENT
  Age: 28 Year
  Sex: Male
  Weight: 77.1 kg

DRUGS (2)
  1. ALEVE TABLET [Suspect]
     Indication: PAIN
     Route: 048
  2. ALEVE TABLET [Suspect]
     Indication: PAIN
     Dosage: 20 DF, ONCE
     Route: 048
     Dates: start: 20130508, end: 20130508

REACTIONS (2)
  - Nausea [None]
  - Intentional overdose [None]
